FAERS Safety Report 8128080-0 (Version None)
Quarter: 2012Q1

REPORT INFORMATION
  Report Type: 
  Country: None (occurrence: None)
  Receive Date: 20120210
  Receipt Date: 20120206
  Transmission Date: 20120608
  Serious: Yes (Other)
  Sender: FDA-Public Use
  Company Number: US-PFIZER INC-2012024812

PATIENT
  Sex: Female
  Weight: 73.016 kg

DRUGS (12)
  1. LISINOPRIL [Suspect]
     Indication: BLOOD PRESSURE ABNORMAL
     Dosage: 40 MG, DAILY
     Dates: start: 19960801
  2. PRAVASTATIN [Suspect]
     Indication: BLOOD CHOLESTEROL ABNORMAL
     Dosage: 80 MG, DAILY
     Dates: start: 20110101, end: 20120104
  3. ASPIRIN [Concomitant]
     Dosage: 325 MG, DAILY ENTERIC COATED TABLET
     Route: 048
  4. LIPITOR [Suspect]
     Indication: BLOOD CHOLESTEROL ABNORMAL
     Dosage: 80 MG, DAILY AT NIGHT
     Route: 048
     Dates: start: 20120105, end: 20120120
  5. SIMVASTATIN [Suspect]
     Indication: LIPID METABOLISM DISORDER
     Dosage: 40 MG, DAILY
     Dates: start: 19960401, end: 20120128
  6. NORVASC [Suspect]
     Indication: BLOOD PRESSURE ABNORMAL
     Dosage: 5 MG, DAILY IN THE MORNING
     Route: 048
     Dates: start: 20120201, end: 20120205
  7. AMLODIPINE BESYLATE [Suspect]
     Indication: HYPERTENSION
  8. LISINOPRIL [Suspect]
     Indication: HYPERTENSION
  9. COREG CR [Suspect]
     Indication: CARDIAC DISORDER
     Dosage: 40 MG, DAILY
     Route: 048
  10. ASPIRIN [Concomitant]
     Dosage: 325 MG, DAILY
     Route: 048
  11. LIPITOR [Suspect]
     Indication: HYPERLIPIDAEMIA
     Dosage: 40 MG, DAILY
  12. AMLODIPINE BESYLATE [Suspect]
     Indication: BLOOD PRESSURE ABNORMAL
     Dosage: 5 MG, DAILY
     Dates: end: 20120131

REACTIONS (10)
  - CARDIAC DISORDER [None]
  - FATIGUE [None]
  - DRUG HYPERSENSITIVITY [None]
  - WEIGHT DECREASED [None]
  - DRUG INEFFECTIVE [None]
  - PRURITUS [None]
  - HYPERSENSITIVITY [None]
  - RASH [None]
  - BLOOD CHOLESTEROL INCREASED [None]
  - URTICARIA [None]
